FAERS Safety Report 8567845-8 (Version None)
Quarter: 2012Q3

REPORT INFORMATION
  Report Type: 
  Country: None (occurrence: None)
  Receive Date: 20120803
  Receipt Date: 20120725
  Transmission Date: 20120928
  Serious: Yes (Hospitalization)
  Sender: FDA-Public Use
  Company Number: JP-VERTEX PHARMACEUTICALS INC.-AE-2012-010719

PATIENT
  Age: 70 Year
  Sex: Female

DRUGS (18)
  1. PEG-INTRON [Concomitant]
     Route: 058
     Dates: start: 20120607, end: 20120607
  2. METHADERM [Concomitant]
     Route: 062
     Dates: start: 20120518
  3. VITAMENDIN [Concomitant]
     Dates: start: 20120712, end: 20120716
  4. REBETOL [Concomitant]
     Route: 048
     Dates: start: 20120719
  5. MERISLON [Concomitant]
     Route: 048
  6. GLUFAST [Concomitant]
     Route: 048
     Dates: end: 20120517
  7. LOXONIN [Concomitant]
     Route: 048
     Dates: start: 20120516
  8. TALION [Concomitant]
     Route: 048
     Dates: start: 20120518
  9. TELAVIC (TELAPREVIR) [Suspect]
     Indication: HEPATITIS C
     Route: 048
     Dates: start: 20120516
  10. REBETOL [Concomitant]
     Indication: HEPATITIS C
     Route: 048
     Dates: start: 20120516, end: 20120711
  11. PEG-INTRON [Concomitant]
     Route: 058
     Dates: start: 20120614
  12. HIRUDOID LOTION [Concomitant]
     Route: 062
     Dates: start: 20120518
  13. SOLACET F [Concomitant]
     Dates: start: 20120712, end: 20120716
  14. LANSOPRAZOLE [Concomitant]
     Route: 048
     Dates: start: 20120516
  15. REBETOL [Concomitant]
     Route: 048
     Dates: start: 20120712, end: 20120717
  16. PEG-INTRON [Concomitant]
     Indication: HEPATITIS C
     Route: 058
     Dates: start: 20120516, end: 20120530
  17. GLUFAST [Concomitant]
     Route: 048
     Dates: start: 20120517
  18. CALBLOCK [Concomitant]
     Route: 048

REACTIONS (1)
  - DECREASED APPETITE [None]
